FAERS Safety Report 9282755 (Version 2)
Quarter: 2014Q2

REPORT INFORMATION
  Report Type: Report from Study
  Country: MX (occurrence: MX)
  Receive Date: 20130510
  Receipt Date: 20140530
  Transmission Date: 20141212
  Serious: Yes (Death)
  Sender: FDA-Public Use
  Company Number: PHHY2013MX046447

PATIENT
  Age: 62 Year
  Sex: Male

DRUGS (1)
  1. ONBREZ [Suspect]
     Indication: CHRONIC OBSTRUCTIVE PULMONARY DISEASE
     Dosage: 150 UG, QD
     Route: 006
     Dates: start: 20120411

REACTIONS (1)
  - Chronic obstructive pulmonary disease [Fatal]
